FAERS Safety Report 9963954 (Version 2)
Quarter: 2014Q1

REPORT INFORMATION
  Report Type: Report from Study
  Country: US (occurrence: US)
  Receive Date: 20140305
  Receipt Date: 20140324
  Transmission Date: 20141002
  Serious: Yes (Other)
  Sender: FDA-Public Use
  Company Number: US-ABBVIE-14P-163-1207768-00

PATIENT
  Age: 42 Year
  Sex: Female

DRUGS (2)
  1. LUPRON DEPOT [Suspect]
     Indication: UTERINE LEIOMYOMA
     Route: 030
     Dates: start: 201308
  2. NORETHINDRONE [Concomitant]
     Indication: HORMONE REPLACEMENT THERAPY

REACTIONS (3)
  - Visual acuity reduced [Not Recovered/Not Resolved]
  - Migraine [Not Recovered/Not Resolved]
  - Acne cystic [Not Recovered/Not Resolved]
